APPROVED DRUG PRODUCT: DOXYCYCLINE HYCLATE
Active Ingredient: DOXYCYCLINE HYCLATE
Strength: EQ 100MG BASE
Dosage Form/Route: TABLET;ORAL
Application: A062462 | Product #001
Applicant: HEATHER DRUG CO INC
Approved: May 11, 1983 | RLD: No | RS: No | Type: DISCN